FAERS Safety Report 4320364-7 (Version None)
Quarter: 2004Q1

REPORT INFORMATION
  Report Type: 
  Country: None (occurrence: None)
  Receive Date: 20040317
  Receipt Date: 20040305
  Transmission Date: 20041129
  Serious: Yes (Other)
  Sender: FDA-Public Use
  Company Number: NL-JNJFOC-20040301233

PATIENT
  Age: 54 Year
  Sex: Male

DRUGS (3)
  1. REMICADE [Suspect]
     Indication: CHRONIC OBSTRUCTIVE AIRWAYS DISEASE
     Dosage: 370 MG, 1 IN 1 DAY, INTRAVENOUS
     Route: 042
     Dates: start: 20030714, end: 20030714
  2. REMICADE [Suspect]
     Indication: CHRONIC OBSTRUCTIVE AIRWAYS DISEASE
     Dosage: 370 MG, 1 IN 1 DAY, INTRAVENOUS
     Route: 042
     Dates: start: 20030729, end: 20030729
  3. REMICADE [Suspect]
     Indication: CHRONIC OBSTRUCTIVE AIRWAYS DISEASE
     Dosage: 370 MG, 1 IN 1 DAY, INTRAVENOUS
     Route: 042
     Dates: start: 20030825, end: 20030825

REACTIONS (3)
  - LYMPHADENITIS [None]
  - METASTATIC NEOPLASM [None]
  - OROPHARYNGEAL CANCER STAGE UNSPECIFIED [None]
